FAERS Safety Report 22650801 (Version 1)
Quarter: 2023Q2

REPORT INFORMATION
  Report Type: Spontaneous
  Country: US (occurrence: US)
  Receive Date: 20230628
  Receipt Date: 20230628
  Transmission Date: 20230722
  Serious: No
  Sender: FDA-Public Use
  Company Number: US-TEVA-2023-US-2898233

PATIENT
  Sex: Male

DRUGS (3)
  1. AUSTEDO [Suspect]
     Active Substance: DEUTETRABENAZINE
     Indication: Tardive dyskinesia
     Route: 065
  2. FANAPT [Concomitant]
     Active Substance: ILOPERIDONE
     Indication: Schizophrenia
     Route: 065
  3. ZYPREXA [Concomitant]
     Active Substance: OLANZAPINE
     Indication: Schizophrenia
     Route: 065

REACTIONS (2)
  - Insomnia [Unknown]
  - Fatigue [Unknown]
